FAERS Safety Report 5955994-X (Version None)
Quarter: 2008Q4

REPORT INFORMATION
  Report Type: 
  Country: None (occurrence: None)
  Receive Date: 20081112
  Receipt Date: 20081028
  Transmission Date: 20090506
  Serious: Yes (Hospitalization)
  Sender: FDA-Public Use
  Company Number: SPV1-2008-01578

PATIENT
  Age: 11 Year
  Sex: Male
  Weight: 30.8 kg

DRUGS (8)
  1. DAYTRANA [Suspect]
     Indication: DISTURBANCE IN ATTENTION
     Dosage: 15 MG, 1X/DAY: QD, TRANSDERMAL; 10 MG, 1X/DAY:QD, TRANSDERMAL
     Route: 062
     Dates: start: 20080601, end: 20080701
  2. DAYTRANA [Suspect]
     Indication: PSYCHOMOTOR HYPERACTIVITY
     Dosage: 15 MG, 1X/DAY: QD, TRANSDERMAL; 10 MG, 1X/DAY:QD, TRANSDERMAL
     Route: 062
     Dates: start: 20080601, end: 20080701
  3. DAYTRANA [Suspect]
     Indication: DISTURBANCE IN ATTENTION
     Dosage: 15 MG, 1X/DAY: QD, TRANSDERMAL; 10 MG, 1X/DAY:QD, TRANSDERMAL
     Route: 062
     Dates: start: 20080701
  4. DAYTRANA [Suspect]
     Indication: PSYCHOMOTOR HYPERACTIVITY
     Dosage: 15 MG, 1X/DAY: QD, TRANSDERMAL; 10 MG, 1X/DAY:QD, TRANSDERMAL
     Route: 062
     Dates: start: 20080701
  5. ZOLOFT /0101140/ (SERTRALINE) [Concomitant]
  6. DIFLUCAN [Concomitant]
  7. PROBIOTICS (BACTERIA NOS) [Concomitant]
  8. VITAMIN C /00008001/ (ASCORBIC ACID) [Concomitant]

REACTIONS (2)
  - CONVULSION [None]
  - ENCEPHALITIS VIRAL [None]
